FAERS Safety Report 4881004-1 (Version None)
Quarter: 2005Q4

REPORT INFORMATION
  Report Type: 
  Country: None (occurrence: None)
  Receive Date: 20051223
  Receipt Date: 20050923
  Transmission Date: 20060501
  Serious: No
  Sender: FDA-Public Use
  Company Number: 05P-163-0311804

PATIENT
  Age: 51 Year
  Sex: Female
  Weight: 114 kg

DRUGS (10)
  1. HUMIRA [Suspect]
     Indication: RHEUMATOID ARTHRITIS
     Dosage: 40 MG, 1 IN 2 WK, SUBCUTANEOUS
     Route: 058
     Dates: start: 20031201, end: 20050909
  2. METHOTREXATE [Concomitant]
  3. FOLIC ACID [Concomitant]
  4. CELECOXIB [Concomitant]
  5. METAXALONE [Concomitant]
  6. MULTIVITAMIN [Concomitant]
  7. CITRACAL + D [Concomitant]
  8. HYDROXYCHLOROQUINE PHOSPHATE [Concomitant]
  9. LORATADINE [Concomitant]
  10. BUDESONIDE [Concomitant]

REACTIONS (2)
  - LYMPHOMA [None]
  - WHITE BLOOD CELL COUNT DECREASED [None]
